FAERS Safety Report 9868761 (Version 1)
Quarter: 2014Q1

REPORT INFORMATION
  Report Type: Spontaneous
  Country: FR (occurrence: FR)
  Receive Date: 20140204
  Receipt Date: 20140204
  Transmission Date: 20141002
  Serious: Yes (Hospitalization)
  Sender: FDA-Public Use
  Company Number: FR-ASTRAZENECA-2014SE07195

PATIENT
  Age: 24172 Day
  Sex: Female

DRUGS (4)
  1. ARIMIDEX [Suspect]
     Indication: BREAST CANCER FEMALE
     Route: 048
     Dates: start: 20090301, end: 20090405
  2. LUMIGAN [Concomitant]
     Indication: GLAUCOMA
  3. TEMESTA [Concomitant]
  4. ALTEIS [Concomitant]
     Indication: HYPERTENSION

REACTIONS (2)
  - Sarcoidosis [Not Recovered/Not Resolved]
  - Arthralgia [Not Recovered/Not Resolved]
